FAERS Safety Report 10084689 (Version 1)
Quarter: 2014Q2

REPORT INFORMATION
  Report Type: Spontaneous
  Country: US (occurrence: US)
  Receive Date: 20140417
  Receipt Date: 20140417
  Transmission Date: 20141212
  Serious: No
  Sender: FDA-Public Use
  Company Number: US-PFIZER INC-2014103865

PATIENT
  Age: 69 Year
  Sex: Female
  Weight: 61.68 kg

DRUGS (6)
  1. ATORVASTATIN CALCIUM [Suspect]
     Indication: BLOOD CHOLESTEROL INCREASED
     Dosage: UNK
  2. ASPIRIN [Concomitant]
     Dosage: 325 MG, UNK
  3. SYNTHROID [Concomitant]
     Dosage: 150 UG, UNK
  4. LISINOPRIL [Concomitant]
     Indication: BLOOD PRESSURE ABNORMAL
     Dosage: 10 MG, UNK
  5. OMEGA-3 [Concomitant]
     Dosage: UNK
  6. VITAMIN B [Concomitant]
     Dosage: UNK

REACTIONS (4)
  - Feeling abnormal [Unknown]
  - Asthenia [Unknown]
  - Discomfort [Unknown]
  - Feeling jittery [Unknown]
